FAERS Safety Report 19222321 (Version 1)
Quarter: 2021Q2

REPORT INFORMATION
  Report Type: Spontaneous
  Country: GR (occurrence: GR)
  Receive Date: 20210506
  Receipt Date: 20210506
  Transmission Date: 20210717
  Serious: Yes (Hospitalization, Disabling, Other)
  Sender: FDA-Public Use
  Company Number: GR-LUPIN PHARMACEUTICALS INC.-2021-06190

PATIENT
  Sex: Male
  Weight: 1.12 kg

DRUGS (17)
  1. GENTAMICIN. [Suspect]
     Active Substance: GENTAMICIN
     Indication: NEONATAL RESPIRATORY FAILURE
     Dosage: UNK VIA AN UMBILICAL LINE
     Route: 042
  2. FENTANYL. [Suspect]
     Active Substance: FENTANYL
     Indication: NEONATAL RESPIRATORY FAILURE
     Dosage: UNK DAILY INJECTION OF AZACITIDINE FOR ONE WEEK (CYCLE 2)
     Route: 042
  3. FENTANYL. [Suspect]
     Active Substance: FENTANYL
     Indication: ENTERAL NUTRITION
  4. AMPICILLIN [Suspect]
     Active Substance: AMPICILLIN
     Indication: NEONATAL RESPIRATORY FAILURE
     Dosage: UNK VIA AN UMBILICAL LINE
     Route: 042
  5. TOTAL PARENTERAL NUTRITION INJECTION (25) [Suspect]
     Active Substance: AMINO ACIDS\DEXTROSE\ELECTROLYTES NOS\SOYBEAN OIL
     Indication: ENTERAL NUTRITION
     Dosage: UNK VIA A PERIPHERAL IV LINE
     Route: 042
  6. CEFTRIAXONE. [Suspect]
     Active Substance: CEFTRIAXONE
     Indication: NEONATAL RESPIRATORY FAILURE
     Dosage: UNK UNK BOLUS
     Route: 042
  7. CEFTRIAXONE. [Suspect]
     Active Substance: CEFTRIAXONE
     Indication: ENTERAL NUTRITION
  8. DOPAMINE [Suspect]
     Active Substance: DOPAMINE HYDROCHLORIDE
     Indication: NEONATAL RESPIRATORY FAILURE
     Dosage: UNK VIA AN UMBILICAL LINE
     Route: 042
  9. ALLOPURINOL. [Concomitant]
     Active Substance: ALLOPURINOL
     Indication: PROPHYLAXIS
     Dosage: UNK
     Route: 065
  10. GENTAMICIN. [Suspect]
     Active Substance: GENTAMICIN
     Indication: ENTERAL NUTRITION
  11. AMPICILLIN [Suspect]
     Active Substance: AMPICILLIN
     Indication: ENTERAL NUTRITION
  12. NITROGLYCERINE [Concomitant]
     Active Substance: NITROGLYCERIN
     Indication: PERIPHERAL ARTERY OCCLUSION
     Dosage: UNK
     Route: 061
  13. NORMAL SALINE [Concomitant]
     Active Substance: SODIUM CHLORIDE
     Indication: ADMINISTRATION SITE EXTRAVASATION
     Dosage: UNK
     Route: 065
  14. DOPAMINE [Suspect]
     Active Substance: DOPAMINE HYDROCHLORIDE
     Indication: ENTERAL NUTRITION
  15. TOTAL PARENTERAL NUTRITION INJECTION (25) [Suspect]
     Active Substance: AMINO ACIDS\DEXTROSE\ELECTROLYTES NOS\SOYBEAN OIL
     Indication: NEONATAL RESPIRATORY FAILURE
     Dosage: UNK VIA AN UMBILICAL LINE
     Route: 042
  16. CAFFEINE. [Suspect]
     Active Substance: CAFFEINE
     Indication: NEONATAL RESPIRATORY FAILURE
     Dosage: UNK VIA AN UMBILICAL LINE
     Route: 042
  17. CAFFEINE. [Suspect]
     Active Substance: CAFFEINE
     Indication: ENTERAL NUTRITION

REACTIONS (8)
  - Peripheral ischaemia [Recovering/Resolving]
  - Arterial disorder [Recovering/Resolving]
  - Administration site extravasation [Recovering/Resolving]
  - Peripheral artery occlusion [Recovering/Resolving]
  - Product administration error [Unknown]
  - Peripheral oedema neonatal [Recovering/Resolving]
  - Peripheral artery thrombosis [Recovering/Resolving]
  - Dry gangrene [Recovering/Resolving]
